FAERS Safety Report 9284410 (Version 2)
Quarter: 2013Q2

REPORT INFORMATION
  Report Type: Spontaneous
  Country: US (occurrence: US)
  Receive Date: 20130510
  Receipt Date: 20130521
  Transmission Date: 20140414
  Serious: Yes (Hospitalization, Other)
  Sender: FDA-Public Use
  Company Number: CHPA2013US007827

PATIENT
  Age: 84 Year
  Sex: Female

DRUGS (8)
  1. MAALOX ANTACID/ANTIGAS MAX QDTABS ASST [Suspect]
     Indication: GASTRITIS
     Dosage: 1 OR 2 DF, UNK
     Route: 048
     Dates: end: 2012
  2. AMLODIPINE [Concomitant]
     Indication: HYPERTENSION
  3. ECOTRIN [Concomitant]
  4. STOOL SOFTENER [Concomitant]
  5. BENADRYL                           /00647601/ [Concomitant]
  6. CLARITIN [Concomitant]
  7. MILK OF MAGNESIA [Concomitant]
  8. B12-VITAMIIN [Concomitant]

REACTIONS (20)
  - Fall [Recovered/Resolved]
  - Gastritis [Unknown]
  - Orthostatic hypotension [Recovering/Resolving]
  - Concussion [Recovered/Resolved]
  - Joint injury [Recovered/Resolved]
  - Head injury [Recovered/Resolved]
  - Asthenia [Recovered/Resolved]
  - Scoliosis [Not Recovered/Not Resolved]
  - Aneurysm [Not Recovered/Not Resolved]
  - Blood potassium decreased [Not Recovered/Not Resolved]
  - Carpal tunnel syndrome [Recovering/Resolving]
  - Cataract [Unknown]
  - Syncope [Recovering/Resolving]
  - Sciatica [Not Recovered/Not Resolved]
  - Pain in extremity [Not Recovered/Not Resolved]
  - Constipation [Unknown]
  - Oesophageal spasm [Recovered/Resolved]
  - Oropharyngeal pain [Recovered/Resolved]
  - Therapeutic response unexpected [Unknown]
  - Off label use [Unknown]
